FAERS Safety Report 15202353 (Version 1)
Quarter: 2018Q3

REPORT INFORMATION
  Report Type: Spontaneous
  Country: US (occurrence: US)
  Receive Date: 20180627
  Receipt Date: 20180627
  Transmission Date: 20181010
  Serious: No
  Sender: FDA-Public Use
  Company Number: None

PATIENT
  Age: 40 Year
  Sex: Female
  Weight: 96.62 kg

DRUGS (3)
  1. MIRENA [Suspect]
     Active Substance: LEVONORGESTREL
  2. MULTIVITAMIN [Concomitant]
     Active Substance: VITAMINS
  3. VITAMIN D [Concomitant]
     Active Substance: CHOLECALCIFEROL

REACTIONS (13)
  - Migraine [None]
  - Middle insomnia [None]
  - Chest pain [None]
  - Insomnia [None]
  - Irritability [None]
  - Depression [None]
  - Hyperacusis [None]
  - Suicidal ideation [None]
  - Tachyphrenia [None]
  - Visual impairment [None]
  - Tinnitus [None]
  - Mood swings [None]
  - Hunger [None]

NARRATIVE: CASE EVENT DATE: 20180618
